FAERS Safety Report 6707363-2 (Version None)
Quarter: 2010Q2

REPORT INFORMATION
  Report Type: 
  Country: None (occurrence: None)
  Receive Date: 20100503
  Receipt Date: 20090724
  Transmission Date: 20101027
  Serious: No
  Sender: FDA-Public Use
  Company Number: US-ASTRAZENECA-2009SE05927

PATIENT
  Sex: Female

DRUGS (3)
  1. NEXIUM [Suspect]
     Indication: GASTROOESOPHAGEAL REFLUX DISEASE
     Dosage: 40 MG TOTAL DAILY DOSE
     Route: 048
  2. ATARAX [Concomitant]
  3. BETA BLOCKER [Concomitant]

REACTIONS (2)
  - ALLERGY TO CHEMICALS [None]
  - DYSGEUSIA [None]
